FAERS Safety Report 6921763-7 (Version None)
Quarter: 2010Q3

REPORT INFORMATION
  Report Type: 
  Country: None (occurrence: None)
  Receive Date: 20100812
  Receipt Date: 20100802
  Transmission Date: 20110219
  Serious: Yes (Other)
  Sender: FDA-Public Use
  Company Number: IT-ABBOTT-10P-083-0661837-00

PATIENT
  Sex: Male

DRUGS (2)
  1. VECLAM [Suspect]
     Indication: ANTIBIOTIC PROPHYLAXIS
     Dosage: 1000MG DAILY DOSE
     Route: 048
     Dates: start: 20100725, end: 20100726
  2. OKI [Suspect]
     Indication: ANTIINFLAMMATORY THERAPY
     Dosage: 160MG DAILY DOSE
     Route: 048
     Dates: start: 20100725, end: 20100726

REACTIONS (3)
  - DYSPNOEA [None]
  - ERYTHEMA [None]
  - PRURITUS [None]
